FAERS Safety Report 4710921-8 (Version None)
Quarter: 2005Q3

REPORT INFORMATION
  Report Type: 
  Country: None (occurrence: None)
  Receive Date: 20050706
  Receipt Date: 20050706
  Transmission Date: 20060218
  Serious: No
  Sender: FDA-Public Use
  Company Number: None

PATIENT
  Age: 71 Year
  Sex: Female
  Weight: 107.9561 kg

DRUGS (7)
  1. CRESTOR [Suspect]
     Dosage: 10 MG QD PO
     Route: 048
  2. NORVASC [Concomitant]
  3. COZAAR [Concomitant]
  4. ZOLOFT [Concomitant]
  5. AVANDIA [Concomitant]
  6. THYROID COMPOUND [Concomitant]
  7. GLUCOVANCE [Concomitant]

REACTIONS (5)
  - ALDOLASE INCREASED [None]
  - BLOOD CREATINE PHOSPHOKINASE INCREASED [None]
  - BLOOD CREATININE INCREASED [None]
  - BLOOD UREA INCREASED [None]
  - MYALGIA [None]
